FAERS Safety Report 9863660 (Version 3)
Quarter: 2014Q3

REPORT INFORMATION
  Report Type: Report from Study
  Country: JP (occurrence: JP)
  Receive Date: 20140203
  Receipt Date: 20140704
  Transmission Date: 20150326
  Serious: Yes (Other)
  Sender: FDA-Public Use
  Company Number: JP-009507513-2011SP039969

PATIENT
  Age: 57 Year
  Sex: Male
  Weight: 85 kg

DRUGS (13)
  1. NEUOMIL [Concomitant]
     Active Substance: MAPROTILINE HYDROCHLORIDE
     Indication: DEPRESSION
     Dosage: 4 DF, QD
     Route: 048
     Dates: start: 201010
  2. COPEGUS [Suspect]
     Active Substance: RIBAVIRIN
     Indication: CHRONIC HEPATITIS C
     Dosage: 5 DF, QD
     Route: 048
     Dates: start: 20110610, end: 20111206
  3. TOLEDOMIN [Concomitant]
     Active Substance: MILNACIPRAN HYDROCHLORIDE
     Indication: DEPRESSION
     Dosage: 3 DF, QD
     Route: 048
     Dates: start: 201010
  4. REBETOL [Suspect]
     Active Substance: RIBAVIRIN
     Indication: CHRONIC HEPATITIS C
     Dosage: 400 MG 600MG IN EVENING IN MORNING, TWICE A DAY
     Route: 048
     Dates: start: 20101006, end: 20110127
  5. MYSLEE [Concomitant]
     Active Substance: ZOLPIDEM TARTRATE
     Indication: DEPRESSION
     Dosage: 1 DF, QD
     Route: 048
     Dates: start: 201010
  6. DAI-KENCHU-TO [Concomitant]
     Active Substance: MALTOSE
     Indication: ABDOMINAL PAIN
     Dosage: 7.5 G, QD
     Route: 048
     Dates: start: 201010
  7. FERON [Suspect]
     Active Substance: INTERFERON BETA
     Indication: CHRONIC HEPATITIS C
     Dosage: 6MIU (ALSO REPORTED 6 MILLION-BILLION UNIT), QD
     Route: 041
     Dates: start: 20101006, end: 20101102
  8. FERON [Suspect]
     Active Substance: INTERFERON BETA
     Dosage: 6MIU(ALSO REPORTED AS 6 MILLION-BILLION UNITS ), ROUTE IV UNSPECIFIED, THREE TIMES A WEEK
     Route: 042
     Dates: start: 20101104, end: 20110121
  9. PEGASYS [Suspect]
     Active Substance: PEGINTERFERON ALFA-2A
     Dosage: 90 MICROGRAM, WEEKLY
     Route: 058
     Dates: start: 20111014, end: 20111206
  10. PEGASYS [Suspect]
     Active Substance: PEGINTERFERON ALFA-2A
     Indication: CHRONIC HEPATITIS C
     Dosage: 180 MICROGRAM, WEEKLY
     Route: 058
     Dates: start: 20110610, end: 20111007
  11. MEILAX [Concomitant]
     Active Substance: ETHYL LOFLAZEPATE
     Indication: DEPRESSION
     Dosage: 2 DF, QD
     Route: 048
     Dates: start: 201010
  12. ANAFRANIL [Concomitant]
     Active Substance: CLOMIPRAMINE HYDROCHLORIDE
     Indication: DEPRESSION
     Dosage: 1 DF, QD
     Route: 048
     Dates: start: 201010
  13. ROHYPNOL [Concomitant]
     Active Substance: FLUNITRAZEPAM
     Indication: DEPRESSION
     Dosage: 1 DF, QD
     Route: 048
     Dates: start: 201010

REACTIONS (4)
  - Pyrexia [Recovering/Resolving]
  - Hyperuricaemia [Recovered/Resolved]
  - Diabetes mellitus [Recovered/Resolved]
  - Blood glucose increased [Recovering/Resolving]

NARRATIVE: CASE EVENT DATE: 20101007
